FAERS Safety Report 20867021 (Version 2)
Quarter: 2022Q2

REPORT INFORMATION
  Report Type: Spontaneous
  Country: BR (occurrence: BR)
  Receive Date: 20220524
  Receipt Date: 20220601
  Transmission Date: 20220721
  Serious: Yes (Other)
  Sender: FDA-Public Use
  Company Number: BR-DSJP-DSE-2022-117241

PATIENT
  Age: 35 Year
  Sex: Female

DRUGS (5)
  1. ENHERTU [Suspect]
     Active Substance: FAM-TRASTUZUMAB DERUXTECAN-NXKI
     Indication: HER2 positive breast cancer
     Dosage: UNK
     Route: 065
  2. ENHERTU [Suspect]
     Active Substance: FAM-TRASTUZUMAB DERUXTECAN-NXKI
     Dosage: UNK
     Route: 065
  3. ENHERTU [Suspect]
     Active Substance: FAM-TRASTUZUMAB DERUXTECAN-NXKI
     Dosage: UNK
     Route: 065
     Dates: start: 202202
  4. Unknown antiemetic therapy [Concomitant]
     Indication: Nausea
     Dosage: UNK
     Route: 065
  5. Unknown antiemetic therapy [Concomitant]
     Indication: Vomiting

REACTIONS (9)
  - Malignant pleural effusion [Unknown]
  - Alopecia [Unknown]
  - Nausea [Unknown]
  - Fatigue [Unknown]
  - Myalgia [Unknown]
  - Lymphangitis [Unknown]
  - Skin lesion inflammation [Unknown]
  - Skin lesion [Unknown]
  - Drug ineffective [Unknown]
